FAERS Safety Report 4619893-8 (Version None)
Quarter: 2005Q1

REPORT INFORMATION
  Report Type: 
  Country: None (occurrence: None)
  Receive Date: 20050324
  Receipt Date: 20050311
  Transmission Date: 20050727
  Serious: Yes (Hospitalization)
  Sender: FDA-Public Use
  Company Number: SUS1-2005-00215

PATIENT
  Age: 25 Year
  Sex: Female

DRUGS (2)
  1. PENTASA [Suspect]
     Indication: COLITIS ULCERATIVE
     Dosage: 2 G, DAILY, ORAL
     Route: 048
  2. ROWASA [Suspect]
     Indication: COLITIS ULCERATIVE
     Dosage: 2 G, DAILY, RECTAL
     Route: 054
     Dates: start: 20041101

REACTIONS (3)
  - DRUG EXPOSURE DURING PREGNANCY [None]
  - FOETAL GROWTH RETARDATION [None]
  - OLIGOHYDRAMNIOS [None]
